FAERS Safety Report 5377450-2 (Version None)
Quarter: 2007Q3

REPORT INFORMATION
  Report Type: 
  Country: None (occurrence: None)
  Receive Date: 20070703
  Receipt Date: 20070628
  Transmission Date: 20080115
  Serious: Yes (Death, Hospitalization)
  Sender: FDA-Public Use
  Company Number: CA-JNJFOC-20070201421

PATIENT
  Sex: Female

DRUGS (11)
  1. DOXIL [Suspect]
     Route: 042
  2. DOXIL [Suspect]
     Indication: OVARIAN CANCER
     Route: 042
  3. ET743 [Suspect]
     Indication: OVARIAN CANCER
     Route: 042
  4. RED BLOOD CELLS [Concomitant]
     Indication: ANAEMIA
     Dosage: 2 UNITS
     Route: 042
  5. COLACE [Concomitant]
     Route: 048
  6. PERCOCET [Concomitant]
     Indication: PAIN
     Dosage: 1 TABLET EVERY 4-6 HOURS AS NECESSARY
     Route: 048
  7. TYLENOL [Concomitant]
     Indication: PAIN
     Dosage: EVERY 4-6 HOURS AS NECESSARY
     Route: 048
  8. MORPHINE [Concomitant]
     Indication: PAIN
     Dosage: 5-10MG EVERY 4 HOURS, AS NECESSARY
     Route: 042
  9. METACLOPRAMIDE [Concomitant]
     Dosage: AS NECESSARY
     Route: 042
  10. ZOFRAN [Concomitant]
     Dosage: AS NECESSARY
     Route: 042
  11. LASIX [Concomitant]
     Route: 042

REACTIONS (1)
  - ACUTE MYELOID LEUKAEMIA [None]
